FAERS Safety Report 9288690 (Version 4)
Quarter: 2013Q2

REPORT INFORMATION
  Report Type: Spontaneous
  Country: JP (occurrence: JP)
  Receive Date: 20130514
  Receipt Date: 20130626
  Transmission Date: 20140414
  Serious: Yes (Hospitalization, Other)
  Sender: FDA-Public Use
  Company Number: JP-AMGEN-JPNSP2013033400

PATIENT
  Age: 48 Year
  Sex: Female
  Weight: 62 kg

DRUGS (8)
  1. ENBREL [Suspect]
     Indication: PRODUCT USED FOR UNKNOWN INDICATION
     Dosage: 25 MG, 2X/WEEK
     Route: 058
     Dates: start: 20091107, end: 20091127
  2. ENBREL [Suspect]
     Dosage: 25 MG, 2X/WEEK
     Route: 065
     Dates: start: 20091201, end: 20110322
  3. ENBREL [Suspect]
     Dosage: 50 MG, WEEKLY
     Route: 065
     Dates: start: 20110405, end: 20130402
  4. RHEUMATREX                         /00113801/ [Concomitant]
     Dosage: 8 MG, QWK
     Route: 048
     Dates: start: 20091006
  5. FOLIAMIN [Concomitant]
     Indication: PROPHYLAXIS
     Dosage: 5 MG, WEEKLY
     Route: 048
     Dates: start: 20091006, end: 20130514
  6. MECOBALAMIN [Concomitant]
     Indication: NEUROPATHY PERIPHERAL
     Dosage: 5 MG, 3X/DAY
     Route: 048
     Dates: start: 20121016, end: 20130514
  7. FERROMIA                           /00023516/ [Concomitant]
     Indication: IRON DEFICIENCY ANAEMIA
     Dosage: 50 MG, 1X/DAY
     Route: 048
     Dates: start: 20091124, end: 20130504
  8. ALLEGRA [Concomitant]
     Indication: RHINITIS ALLERGIC
     Dosage: 1 DF, 1X/DAY
     Route: 048
     Dates: start: 20130205, end: 20130514

REACTIONS (4)
  - Congestive cardiomyopathy [Unknown]
  - Atrial fibrillation [Unknown]
  - Cardiac failure [Recovering/Resolving]
  - Interstitial lung disease [Recovering/Resolving]
